FAERS Safety Report 6329056-6 (Version None)
Quarter: 2009Q3

REPORT INFORMATION
  Report Type: 
  Country: None (occurrence: None)
  Receive Date: 20090824
  Receipt Date: 20090824
  Transmission Date: 20100115
  Serious: Yes (Other)
  Sender: FDA-Public Use
  Company Number: None

PATIENT
  Age: 43 Year
  Sex: Female
  Weight: 112.0385 kg

DRUGS (3)
  1. NYQUILL [Suspect]
     Indication: COUGH
     Dosage: 30ML
     Dates: start: 20090822, end: 20090822
  2. NYQUILL [Suspect]
     Indication: SINUS DISORDER
     Dosage: 30ML
     Dates: start: 20090822, end: 20090822
  3. NYQUILL [Suspect]
     Indication: SNEEZING
     Dosage: 30ML
     Dates: start: 20090822, end: 20090822

REACTIONS (2)
  - HOT FLUSH [None]
  - SWELLING FACE [None]
